FAERS Safety Report 4390234-7 (Version None)
Quarter: 2004Q3

REPORT INFORMATION
  Report Type: 
  Country: None (occurrence: None)
  Receive Date: 20040706
  Receipt Date: 20031212
  Transmission Date: 20050211
  Serious: Yes (Other)
  Sender: FDA-Public Use
  Company Number: JP-ROCHE-353855

PATIENT
  Age: 36 Year
  Sex: Female

DRUGS (1)
  1. HORIZON [Suspect]
     Indication: INVESTIGATION
     Route: 042
     Dates: start: 20031115, end: 20031115

REACTIONS (8)
  - HYPOAESTHESIA [None]
  - INDURATION [None]
  - INFUSION SITE REACTION [None]
  - INJECTION SITE INDURATION [None]
  - INJECTION SITE PAIN [None]
  - INJECTION SITE SWELLING [None]
  - SWELLING [None]
  - THROMBOPHLEBITIS [None]
